FAERS Safety Report 9233734 (Version 1)
Quarter: 2013Q2

REPORT INFORMATION
  Report Type: Spontaneous
  Country: US (occurrence: US)
  Receive Date: 20130416
  Receipt Date: 20130416
  Transmission Date: 20140414
  Serious: No
  Sender: FDA-Public Use
  Company Number: US-BANPHARM-20120157

PATIENT
  Age: 57 Year
  Sex: Female

DRUGS (6)
  1. ALEVE LIQUID GELS 220 MG [Suspect]
     Indication: ARTHRITIS
     Dosage: 1 DF, BID,
     Route: 048
     Dates: start: 201107, end: 201107
  2. ALEVE CAPLETS [Concomitant]
     Indication: ARTHRITIS
     Dosage: 1 DF, BID
     Route: 048
     Dates: start: 201107, end: 201107
  3. VITAMIN B12 [Concomitant]
  4. VITAMIN E [Concomitant]
  5. VITAMIN D [Concomitant]
  6. BAYER ADVANCED ASPIRIN EXTRA STRENGTH [Concomitant]

REACTIONS (1)
  - Drug ineffective [Unknown]
